FAERS Safety Report 23046658 (Version 1)
Quarter: 2023Q4

REPORT INFORMATION
  Report Type: Spontaneous
  Country: CN (occurrence: CN)
  Receive Date: 20231009
  Receipt Date: 20231009
  Transmission Date: 20240109
  Serious: Yes (Life-Threatening)
  Sender: FDA-Public Use
  Company Number: CN-BAYER-2023A140693

PATIENT
  Age: 43 Year
  Sex: Female
  Weight: 52 kg

DRUGS (1)
  1. ULTRAVIST [Suspect]
     Active Substance: IOPROMIDE
     Indication: Computerised tomogram abdomen
     Dosage: 80 ML, ONCE
     Route: 042
     Dates: start: 20230915, end: 20230915

REACTIONS (7)
  - Contrast media allergy [Recovering/Resolving]
  - Skin tightness [None]
  - Eye disorder [None]
  - Flushing [None]
  - Pruritus [None]
  - Oxygen saturation decreased [Recovering/Resolving]
  - Blood pressure decreased [Recovering/Resolving]

NARRATIVE: CASE EVENT DATE: 20230915
